FAERS Safety Report 22595670 (Version 3)
Quarter: 2023Q4

REPORT INFORMATION
  Report Type: Report from Study
  Country: NL (occurrence: NL)
  Receive Date: 20230613
  Receipt Date: 20231113
  Transmission Date: 20240110
  Serious: Yes (Death, Other)
  Sender: FDA-Public Use
  Company Number: NL-Endocyte-NL-ENDO01-19-00186

PATIENT
  Age: 74 Year
  Sex: Male
  Weight: 67 kg

DRUGS (6)
  1. PLUVICTO [Suspect]
     Active Substance: LUTETIUM LU-177 VIPIVOTIDE TETRAXETAN
     Indication: Hormone-refractory prostate cancer
     Dosage: 7.3 GBQ, ONCE EVERY SIX WEEKS
     Route: 042
     Dates: start: 20190725, end: 20190725
  2. LOCAMETZ [Suspect]
     Active Substance: PSMA-HBED-CC
     Indication: Hormone-refractory prostate cancer
     Dosage: 118 MBQ, ONCE/SINGLE
     Route: 042
     Dates: start: 20190703, end: 20190703
  3. DICLOFENAC [Suspect]
     Active Substance: DICLOFENAC
     Indication: Hormone-refractory prostate cancer
     Dosage: 50 UG, TID
     Route: 065
     Dates: start: 201905
  4. ACETAMINOPHEN [Suspect]
     Active Substance: ACETAMINOPHEN
     Indication: Hormone-refractory prostate cancer
     Dosage: 1000 MG, TID
     Route: 065
     Dates: start: 2019
  5. OMEPRAZOLE [Concomitant]
     Active Substance: OMEPRAZOLE
     Indication: Prophylaxis against gastrointestinal ulcer
     Dosage: 20 MG
     Route: 048
     Dates: start: 2019
  6. MOVICOLON [Concomitant]
     Active Substance: POLYETHYLENE GLYCOL 3350\POTASSIUM CHLORIDE\SODIUM BICARBONATE\SODIUM CHLORIDE
     Indication: Constipation
     Dosage: UNK
     Route: 048
     Dates: start: 2019

REACTIONS (1)
  - Bone marrow failure [Fatal]

NARRATIVE: CASE EVENT DATE: 20190725
